FAERS Safety Report 8338891-4 (Version None)
Quarter: 2012Q2

REPORT INFORMATION
  Report Type: 
  Country: None (occurrence: None)
  Receive Date: 20120506
  Receipt Date: 20120129
  Transmission Date: 20120825
  Serious: Yes (Life-Threatening, Hospitalization, Other)
  Sender: FDA-Public Use
  Company Number: PHHY2012AE037553

PATIENT
  Sex: Female
  Weight: 62 kg

DRUGS (6)
  1. EXJADE [Suspect]
     Dosage: UNK UKN, UNK
     Route: 048
  2. ZOMETA [Concomitant]
     Dosage: 4 MG, THREE MONTHLY
  3. EXJADE [Suspect]
     Indication: CHELATION THERAPY
     Dosage: 2000 MG, DAILY
     Route: 048
     Dates: start: 20081118
  4. CALCIUM CARBONATE [Concomitant]
  5. LEVOTHYROXINE SODIUM [Concomitant]
  6. FOLIC ACID [Concomitant]

REACTIONS (5)
  - CONFUSIONAL STATE [None]
  - MULTI-ORGAN FAILURE [None]
  - HEMIPARESIS [None]
  - DISSEMINATED INTRAVASCULAR COAGULATION [None]
  - PYREXIA [None]
